FAERS Safety Report 6046880-8 (Version None)
Quarter: 2009Q1

REPORT INFORMATION
  Report Type: 
  Country: None (occurrence: None)
  Receive Date: 20090122
  Receipt Date: 20090115
  Transmission Date: 20090719
  Serious: Yes (Hospitalization)
  Sender: FDA-Public Use
  Company Number: B0542846A

PATIENT
  Age: 71 Year
  Sex: Female

DRUGS (10)
  1. MELPHALAN [Suspect]
     Indication: MULTIPLE MYELOMA
     Dosage: 12MG PER DAY
     Route: 065
     Dates: start: 20080924, end: 20080927
  2. PREDNISONE [Suspect]
     Indication: MULTIPLE MYELOMA
     Dosage: 124MG PER DAY
     Route: 065
     Dates: start: 20080924, end: 20080927
  3. BLINDED TRIAL MEDICATION [Suspect]
     Indication: MULTIPLE MYELOMA
     Route: 048
     Dates: start: 20080924
  4. VITAMIN D + CALCIUM [Concomitant]
     Dosage: 1TAB TWICE PER DAY
     Route: 048
  5. MICROPIRIN [Concomitant]
     Dosage: 100MG PER DAY
     Route: 048
  6. NORMITEN [Concomitant]
     Route: 048
  7. DIOVAN [Concomitant]
     Route: 048
  8. NORVASC [Concomitant]
     Route: 048
  9. OMEPRAZOLE [Concomitant]
     Route: 048
  10. MONONIT [Concomitant]
     Route: 048

REACTIONS (5)
  - CEREBRAL ISCHAEMIA [None]
  - CONFUSIONAL STATE [None]
  - DYSPHASIA [None]
  - DYSPHEMIA [None]
  - HEADACHE [None]
